FAERS Safety Report 6497004-4 (Version None)
Quarter: 2009Q4

REPORT INFORMATION
  Report Type: 
  Country: None (occurrence: None)
  Receive Date: 20091215
  Receipt Date: 20081218
  Transmission Date: 20100525
  Serious: No
  Sender: FDA-Public Use
  Company Number: A0761069A

PATIENT
  Age: 60 Year
  Sex: Male

DRUGS (9)
  1. AVODART [Suspect]
     Indication: PROSTATE INFECTION
     Dosage: .5MG PER DAY
     Route: 048
     Dates: start: 20081023, end: 20081204
  2. ANTIBIOTIC [Concomitant]
     Indication: PROSTATE INFECTION
  3. SOMA [Concomitant]
  4. VALIUM [Concomitant]
  5. DARVOCET [Concomitant]
  6. NEURONTIN [Concomitant]
  7. TRAZODONE HCL [Concomitant]
  8. NEXIUM [Concomitant]
  9. COLON CLENZ [Concomitant]

REACTIONS (2)
  - MICTURITION URGENCY [None]
  - URINARY INCONTINENCE [None]
